FAERS Safety Report 8277683-1 (Version None)
Quarter: 2012Q2

REPORT INFORMATION
  Report Type: 
  Country: None (occurrence: None)
  Receive Date: 20120412
  Receipt Date: 20120403
  Transmission Date: 20120825
  Serious: Yes (Death)
  Sender: FDA-Public Use
  Company Number: CA-ROCHE-1056154

PATIENT
  Age: 66 Year
  Sex: Female
  Weight: 64.922 kg

DRUGS (5)
  1. ALTEPLASE [Suspect]
     Indication: PRODUCT USED FOR UNKNOWN INDICATION
     Route: 040
  2. ALTEPLASE [Suspect]
     Route: 042
  3. AMITRIPTYLINE HCL [Concomitant]
     Route: 065
  4. DIMENHYDRINATE [Concomitant]
     Route: 065
  5. MORPHINE [Concomitant]
     Route: 065

REACTIONS (11)
  - LARYNGOTRACHEAL OEDEMA [None]
  - STRIDOR [None]
  - EPIGLOTTITIS [None]
  - PO2 DECREASED [None]
  - NAUSEA [None]
  - SWOLLEN TONGUE [None]
  - DYSPNOEA [None]
  - OBSTRUCTIVE AIRWAYS DISORDER [None]
  - ENDOTRACHEAL INTUBATION COMPLICATION [None]
  - LABORATORY TEST ABNORMAL [None]
  - ANGIOEDEMA [None]
